FAERS Safety Report 18642236 (Version 1)
Quarter: 2020Q4

REPORT INFORMATION
  Report Type: Spontaneous
  Country: US (occurrence: US)
  Receive Date: 20201219
  Receipt Date: 20201219
  Transmission Date: 20210114
  Serious: Yes (Hospitalization, Other)
  Sender: FDA-Public Use
  Company Number: None

PATIENT
  Age: 54 Year
  Sex: Female
  Weight: 127 kg

DRUGS (1)
  1. BAMLANIVIMAB 700MG [Suspect]
     Active Substance: BAMLANIVIMAB
     Indication: COVID-19
     Route: 042

REACTIONS (6)
  - Oropharyngeal pain [None]
  - Hypotension [None]
  - Pyrexia [None]
  - Infusion related reaction [None]
  - Blood pressure systolic decreased [None]
  - Oxygen saturation decreased [None]

NARRATIVE: CASE EVENT DATE: 20201217
